FAERS Safety Report 8069752-6 (Version None)
Quarter: 2011Q4

REPORT INFORMATION
  Report Type: 
  Country: None (occurrence: None)
  Receive Date: 20111221
  Receipt Date: 20110826
  Transmission Date: 20120403
  Serious: Yes (Other)
  Sender: FDA-Public Use
  Company Number: PHEH2011US02709

PATIENT
  Age: 49 Year
  Sex: Female
  Weight: 59.9 kg

DRUGS (1)
  1. EXJADE [Suspect]
     Indication: SICKLE CELL ANAEMIA
     Dosage: 1500 MG, BID, ORAL
     Route: 048
     Dates: start: 20100518, end: 20110601

REACTIONS (1)
  - BLOOD CREATININE INCREASED [None]
